FAERS Safety Report 5085432-3 (Version None)
Quarter: 2006Q3

REPORT INFORMATION
  Report Type: 
  Country: None (occurrence: None)
  Receive Date: 20060815
  Receipt Date: 20060803
  Transmission Date: 20061208
  Serious: Yes (Other)
  Sender: FDA-Public Use
  Company Number: THYM-11011

PATIENT
  Age: 68 Year
  Sex: Female
  Weight: 81.4 kg

DRUGS (15)
  1. THYMOGLOBULIN [Suspect]
     Indication: RENAL TRANSPLANT
     Dosage: 1.5 MG/KG QD IV
     Route: 042
     Dates: start: 20060708
  2. CELLCEPT [Concomitant]
  3. TACROLIMUS [Concomitant]
  4. PREDNISONE TAB [Concomitant]
  5. LEVAQUIN [Concomitant]
  6. FLUCONAZOLE [Concomitant]
  7. VALCYTE [Concomitant]
  8. PREVACID [Concomitant]
  9. TOPROL-XL [Concomitant]
  10. LEVOTHYROXINE SODIUM [Concomitant]
  11. NORVASC [Concomitant]
  12. TRAMADOL HCL [Concomitant]
  13. LANTUS [Concomitant]
  14. QUININE SULFATE [Concomitant]
  15. HUMALOG [Concomitant]

REACTIONS (8)
  - BLOOD CULTURE POSITIVE [None]
  - COMPLICATIONS OF TRANSPLANTED KIDNEY [None]
  - DIRECT INFECTION TRANSMISSION [None]
  - ENTEROBACTER INFECTION [None]
  - KIDNEY TRANSPLANT REJECTION [None]
  - PROCEDURAL COMPLICATION [None]
  - STREPTOCOCCAL INFECTION [None]
  - THROMBOTIC MICROANGIOPATHY [None]
